FAERS Safety Report 18587985 (Version 3)
Quarter: 2023Q1

REPORT INFORMATION
  Report Type: Report from Study
  Country: DE (occurrence: DE)
  Receive Date: 20201207
  Receipt Date: 20230210
  Transmission Date: 20230418
  Serious: Yes (Hospitalization)
  Sender: FDA-Public Use
  Company Number: DE-TAKEDA-DE201924857

PATIENT
  Age: 52 Year
  Sex: Female
  Weight: 48 kg

DRUGS (21)
  1. TEDUGLUTIDE [Suspect]
     Active Substance: TEDUGLUTIDE
     Indication: Short-bowel syndrome
     Dosage: 2.4 MILLIGRAM, QD
     Route: 042
     Dates: start: 20160126, end: 201807
  2. TEDUGLUTIDE [Suspect]
     Active Substance: TEDUGLUTIDE
     Indication: Short-bowel syndrome
     Dosage: 2.4 MILLIGRAM, QD
     Route: 042
     Dates: start: 20160126, end: 201807
  3. TEDUGLUTIDE [Suspect]
     Active Substance: TEDUGLUTIDE
     Indication: Short-bowel syndrome
     Dosage: 2.4 MILLIGRAM, QD
     Route: 042
     Dates: start: 20160126, end: 201807
  4. TEDUGLUTIDE [Suspect]
     Active Substance: TEDUGLUTIDE
     Indication: Short-bowel syndrome
     Dosage: 2.4 MILLIGRAM, QD
     Route: 042
     Dates: start: 20160126, end: 201807
  5. TEDUGLUTIDE [Suspect]
     Active Substance: TEDUGLUTIDE
     Dosage: 2.6 MILLIGRAM, QD
     Route: 042
     Dates: start: 201807, end: 201809
  6. TEDUGLUTIDE [Suspect]
     Active Substance: TEDUGLUTIDE
     Dosage: 2.6 MILLIGRAM, QD
     Route: 042
     Dates: start: 201807, end: 201809
  7. TEDUGLUTIDE [Suspect]
     Active Substance: TEDUGLUTIDE
     Dosage: 2.6 MILLIGRAM, QD
     Route: 042
     Dates: start: 201807, end: 201809
  8. TEDUGLUTIDE [Suspect]
     Active Substance: TEDUGLUTIDE
     Dosage: 2.6 MILLIGRAM, QD
     Route: 042
     Dates: start: 201807, end: 201809
  9. TEDUGLUTIDE [Suspect]
     Active Substance: TEDUGLUTIDE
     Dosage: 2.4 MILLIGRAM, QD
     Route: 042
     Dates: start: 201809
  10. TEDUGLUTIDE [Suspect]
     Active Substance: TEDUGLUTIDE
     Dosage: 2.4 MILLIGRAM, QD
     Route: 042
     Dates: start: 201809
  11. TEDUGLUTIDE [Suspect]
     Active Substance: TEDUGLUTIDE
     Dosage: 2.4 MILLIGRAM, QD
     Route: 042
     Dates: start: 201809
  12. TEDUGLUTIDE [Suspect]
     Active Substance: TEDUGLUTIDE
     Dosage: 2.4 MILLIGRAM, QD
     Route: 042
     Dates: start: 201809
  13. VERTIGOHEEL [HOMEOPATHICS NOS] [Concomitant]
     Indication: Vertigo
  14. CINNARIZINE\DIMENHYDRINATE [Concomitant]
     Active Substance: CINNARIZINE\DIMENHYDRINATE
     Indication: Product used for unknown indication
  15. PRADAXA [Concomitant]
     Active Substance: DABIGATRAN ETEXILATE MESYLATE
     Indication: Product used for unknown indication
  16. XARELTO [Concomitant]
     Active Substance: RIVAROXABAN
     Indication: Protein S deficiency
  17. LACTASE [Concomitant]
     Active Substance: LACTASE
     Indication: Constipation
     Dosage: 12000.00 INTERNATIONAL UNIT, QD
     Route: 048
     Dates: start: 202201
  18. LACTASE [Concomitant]
     Active Substance: LACTASE
     Indication: Diarrhoea
  19. Mucofalk [Concomitant]
     Indication: Flatulence
     Dosage: 150 MILLIGRAM, QD
     Route: 048
     Dates: start: 202201
  20. TRIMIPRAMINE [Concomitant]
     Active Substance: TRIMIPRAMINE
     Dosage: 100 MILLIGRAM, BID
     Route: 065
     Dates: start: 20201130
  21. BUPRENORPHINE [Concomitant]
     Active Substance: BUPRENORPHINE
     Dosage: 0.2 MILLIGRAM
     Route: 065

REACTIONS (2)
  - Lung infiltration [Not Recovered/Not Resolved]
  - Catheter site abscess [Recovered/Resolved]

NARRATIVE: CASE EVENT DATE: 20190501
